FAERS Safety Report 13340009 (Version 4)
Quarter: 2017Q2

REPORT INFORMATION
  Report Type: Spontaneous
  Country: US (occurrence: US)
  Receive Date: 20170316
  Receipt Date: 20170504
  Transmission Date: 20170830
  Serious: No
  Sender: FDA-Public Use
  Company Number: US-BIOGEN-2017BI00370155

PATIENT
  Age: 54 Year
  Sex: Female

DRUGS (2)
  1. PLEGRIDY [Suspect]
     Active Substance: PEGINTERFERON BETA-1A
     Indication: MULTIPLE SCLEROSIS
     Route: 065
     Dates: start: 20170301
  2. PLEGRIDY [Suspect]
     Active Substance: PEGINTERFERON BETA-1A
     Route: 058
     Dates: start: 20170227, end: 20170327

REACTIONS (12)
  - Burning sensation [Recovered/Resolved]
  - Injection site urticaria [Unknown]
  - Injection site hyperaesthesia [Unknown]
  - Injection site reaction [Unknown]
  - Injection site erythema [Unknown]
  - Limb mass [Not Recovered/Not Resolved]
  - Injection site pain [Unknown]
  - Injection site swelling [Recovered/Resolved]
  - Injection site warmth [Unknown]
  - Skin discolouration [Not Recovered/Not Resolved]
  - Gait disturbance [Recovered/Resolved]
  - Injection site vesicles [Unknown]

NARRATIVE: CASE EVENT DATE: 20170302
